FAERS Safety Report 13983709 (Version 1)
Quarter: 2017Q3

REPORT INFORMATION
  Report Type: Spontaneous
  Country: US (occurrence: US)
  Receive Date: 20170918
  Receipt Date: 20170918
  Transmission Date: 20171128
  Serious: Yes (Other)
  Sender: FDA-Public Use
  Company Number: US-PFIZER INC-2017398550

PATIENT
  Age: 16 Year
  Sex: Male
  Weight: 63.49 kg

DRUGS (1)
  1. EPIPEN [Suspect]
     Active Substance: EPINEPHRINE
     Indication: HYPERSENSITIVITY
     Dosage: 0.3 MG, PRN
     Route: 030
     Dates: start: 20170902, end: 20170902

REACTIONS (6)
  - Device failure [Recovered/Resolved]
  - Product quality issue [Recovered/Resolved]
  - Product storage error [Unknown]
  - Needle issue [Recovered/Resolved]
  - Device use issue [Recovered/Resolved]
  - Injection site haemorrhage [Recovered/Resolved]

NARRATIVE: CASE EVENT DATE: 20170902
